FAERS Safety Report 6341719-5 (Version None)
Quarter: 2009Q3

REPORT INFORMATION
  Report Type: 
  Country: None (occurrence: None)
  Receive Date: 20090904
  Receipt Date: 20090827
  Transmission Date: 20100115
  Serious: Yes (Hospitalization)
  Sender: FDA-Public Use
  Company Number: US-JNJFOC-20090809230

PATIENT
  Sex: Male
  Weight: 92 kg

DRUGS (2)
  1. INFLIXIMAB [Suspect]
     Indication: PROPHYLAXIS
     Route: 042
  2. INFLIXIMAB [Suspect]
     Indication: COLITIS ULCERATIVE
     Route: 042

REACTIONS (1)
  - COLITIS ULCERATIVE [None]
